FAERS Safety Report 13399557 (Version 5)
Quarter: 2018Q3

REPORT INFORMATION
  Report Type: Report from Study
  Country: US (occurrence: US)
  Receive Date: 20170404
  Receipt Date: 20180926
  Transmission Date: 20181010
  Serious: Yes (Other)
  Sender: FDA-Public Use
  Company Number: PHEH2017US009423

PATIENT
  Sex: Male

DRUGS (1)
  1. ENTRESTO [Suspect]
     Active Substance: SACUBITRIL\VALSARTAN
     Indication: PRODUCT USED FOR UNKNOWN INDICATION
     Dosage: UNK
     Route: 065

REACTIONS (9)
  - Lung neoplasm malignant [Unknown]
  - Cardiac failure [Unknown]
  - Leukaemia [Unknown]
  - Malaise [Unknown]
  - Throat cancer [Unknown]
  - Neoplasm malignant [Unknown]
  - Blood pressure increased [Unknown]
  - Somnolence [Unknown]
  - Blood pressure abnormal [Unknown]
